FAERS Safety Report 25130427 (Version 1)
Quarter: 2025Q1

REPORT INFORMATION
  Report Type: Other
  Country: US (occurrence: US)
  Receive Date: 20250327
  Receipt Date: 20250327
  Transmission Date: 20250408
  Serious: Yes (Hospitalization, Other)
  Sender: KINIKSA PHARMACEUTICALS
  Company Number: US-Kiniksa Pharmaceuticals Ltd.-2025KPU000801

PATIENT
  Age: 58 Year
  Sex: Male

DRUGS (2)
  1. ARCALYST [Suspect]
     Active Substance: RILONACEPT
     Indication: Pericarditis
  2. ARCALYST [Suspect]
     Active Substance: RILONACEPT
     Indication: Pericarditis constrictive

REACTIONS (8)
  - Cardiac failure [Unknown]
  - Vasoplegia syndrome [Unknown]
  - Postoperative respiratory failure [Unknown]
  - Hypervolaemia [Unknown]
  - Off label use [Unknown]
  - Pleural effusion [Unknown]
  - Pericarditis constrictive [Unknown]
  - Pericarditis [Unknown]
